FAERS Safety Report 14954799 (Version 1)
Quarter: 2018Q2

REPORT INFORMATION
  Report Type: Spontaneous
  Country: CN (occurrence: CN)
  Receive Date: 20180530
  Receipt Date: 20180530
  Transmission Date: 20180711
  Serious: Yes (Hospitalization)
  Sender: FDA-Public Use
  Company Number: PHHY2018CN010668

PATIENT
  Age: 13 Year
  Sex: Male

DRUGS (2)
  1. CARBAMAZEPINE. [Suspect]
     Active Substance: CARBAMAZEPINE
     Indication: PRODUCT USED FOR UNKNOWN INDICATION
     Route: 048
  2. METHADONE [Concomitant]
     Active Substance: METHADONE HYDROCHLORIDE
     Indication: PRODUCT USED FOR UNKNOWN INDICATION
     Route: 065

REACTIONS (7)
  - Seizure [Recovered/Resolved]
  - Drug abuse [Unknown]
  - Arrhythmia [Recovered/Resolved]
  - Respiratory depression [Recovered/Resolved]
  - Euphoric mood [Recovered/Resolved]
  - Overdose [Unknown]
  - Pneumonia aspiration [Recovered/Resolved]
